FAERS Safety Report 24811271 (Version 1)
Quarter: 2025Q1

REPORT INFORMATION
  Report Type: Spontaneous
  Country: US (occurrence: US)
  Receive Date: 20250106
  Receipt Date: 20250106
  Transmission Date: 20250408
  Serious: No
  Sender: CURIUM PHARMACEUTICALS
  Company Number: US-CURIUM-2024000985

PATIENT

DRUGS (4)
  1. ULTRATAG RBC [Interacting]
     Active Substance: TECHNETIUM TC-99M RED BLOOD CELLS
     Indication: Radioisotope scan
     Route: 042
     Dates: start: 2024, end: 2024
  2. TECHNETIUM TC-99M SODIUM PERTECHNETATE [Interacting]
     Active Substance: TECHNETIUM TC-99M SODIUM PERTECHNETATE
     Indication: Radioisotope scan
     Route: 042
     Dates: start: 2024, end: 2024
  3. ADENINE\ANHYDROUS CITRIC ACID\DEXTROSE MONOHYDRATE\MANNITOL\SODIUM PHO [Interacting]
     Active Substance: ADENINE\ANHYDROUS CITRIC ACID\DEXTROSE MONOHYDRATE\MANNITOL\SODIUM PHOSPHATE, MONOBASIC\SODIUM PHOSP
     Indication: Transfusion
     Route: 042
     Dates: start: 2024, end: 2024
  4. HUMAN RED BLOOD CELL [Interacting]
     Active Substance: HUMAN RED BLOOD CELL

REACTIONS (2)
  - Radioisotope scan abnormal [Unknown]
  - Drug interaction [Unknown]

NARRATIVE: CASE EVENT DATE: 20240101
